FAERS Safety Report 10846894 (Version 1)
Quarter: 2015Q1

REPORT INFORMATION
  Report Type: Spontaneous
  Country: AT (occurrence: AT)
  Receive Date: 20150220
  Receipt Date: 20150220
  Transmission Date: 20150721
  Serious: Yes (Other)
  Sender: FDA-Public Use
  Company Number: AT-MUNDIPHARMA DS AND PHARMACOVIGILANCE-DEU-2015-0016331

PATIENT
  Age: 32 Year
  Sex: Male

DRUGS (1)
  1. SUBSTITOL RETARD KAPSELN [Suspect]
     Active Substance: MORPHINE SULFATE
     Indication: PRODUCT USED FOR UNKNOWN INDICATION
     Dosage: UNK
     Route: 042

REACTIONS (2)
  - Drug abuse [Unknown]
  - Theft [Unknown]

NARRATIVE: CASE EVENT DATE: 20150208
